FAERS Safety Report 8514892-8 (Version None)
Quarter: 2012Q3

REPORT INFORMATION
  Report Type: 
  Country: None (occurrence: None)
  Receive Date: 20120711
  Receipt Date: 20120711
  Transmission Date: 20120928
  Serious: Yes (Hospitalization)
  Sender: FDA-Public Use
  Company Number: None

PATIENT
  Sex: Male
  Weight: 89.9 kg

DRUGS (3)
  1. CYTARABINE [Suspect]
     Dosage: 3886 MG
  2. DAUNORUBICIN HCL [Suspect]
     Dosage: 318 MG
  3. ETOPOSIDE [Suspect]
     Dosage: 1060 MG

REACTIONS (1)
  - ACUTE RESPIRATORY FAILURE [None]
